FAERS Safety Report 13332296 (Version 1)
Quarter: 2017Q1

REPORT INFORMATION
  Report Type: Spontaneous
  Country: US (occurrence: US)
  Receive Date: 20170313
  Receipt Date: 20170313
  Transmission Date: 20170428
  Serious: Yes (Other)
  Sender: FDA-Public Use
  Company Number: None

PATIENT
  Age: 44 Year
  Sex: Male
  Weight: 98.52 kg

DRUGS (1)
  1. HYDROCODONE/ACETAMINOPHEN [Suspect]
     Active Substance: ACETAMINOPHEN\HYDROCODONE
     Indication: PAIN
     Dosage: 7.5/325 Q12 PO
     Route: 048
     Dates: start: 20170228, end: 20170313

REACTIONS (4)
  - Dyspnoea [None]
  - Nervousness [None]
  - Anxiety [None]
  - Dysgeusia [None]

NARRATIVE: CASE EVENT DATE: 20170309
